FAERS Safety Report 9935240 (Version 2)
Quarter: 2014Q2

REPORT INFORMATION
  Report Type: Spontaneous
  Country: DE (occurrence: DE)
  Receive Date: 20140228
  Receipt Date: 20140625
  Transmission Date: 20141212
  Serious: Yes (Other)
  Sender: FDA-Public Use
  Company Number: DE-UCBSA-113509

PATIENT
  Age: 51 Year
  Sex: Female

DRUGS (1)
  1. CIMZIA [Suspect]
     Indication: SPONDYLITIS
     Dosage: UNK
     Dates: start: 20131111, end: 201402

REACTIONS (7)
  - Vaginal inflammation [Recovered/Resolved]
  - Vulvovaginal mycotic infection [Recovered/Resolved]
  - Nasal dryness [Recovered/Resolved]
  - Chapped lips [Recovered/Resolved]
  - Weight increased [Not Recovered/Not Resolved]
  - Impaired healing [Unknown]
  - Drug ineffective [Unknown]
